FAERS Safety Report 4427492-6 (Version None)
Quarter: 2004Q3

REPORT INFORMATION
  Report Type: 
  Country: None (occurrence: None)
  Receive Date: 20040812
  Receipt Date: 20040728
  Transmission Date: 20050211
  Serious: Yes (Death, Hospitalization)
  Sender: FDA-Public Use
  Company Number: 2004EU001459

PATIENT
  Age: 42 Year
  Sex: Female

DRUGS (5)
  1. PROGRAF [Suspect]
     Indication: LIVER TRANSPLANT
     Dosage: D, ORAL
     Route: 048
     Dates: start: 19990901, end: 20000301
  2. CORTICOSTEROIDS [Concomitant]
  3. FLUDARABINE PHOSPHATE [Concomitant]
  4. ANTITHYMOCYTE IMMUNOGLOBULIN (ANTITHYMOCYTE IMMUNOGLOBULIN) [Concomitant]
  5. MYCOPHENOLATE MOFETIL (MYCOPHENOLATE MOFETIL) [Concomitant]

REACTIONS (4)
  - BILE DUCT CANCER [None]
  - GRAFT VERSUS HOST DISEASE [None]
  - MALIGNANT PERITONEAL NEOPLASM [None]
  - NEOPLASM PROGRESSION [None]
